FAERS Safety Report 7048860-2 (Version None)
Quarter: 2010Q4

REPORT INFORMATION
  Report Type: 
  Country: None (occurrence: None)
  Receive Date: 20101012
  Receipt Date: 20100923
  Transmission Date: 20110411
  Serious: Yes (Hospitalization)
  Sender: FDA-Public Use
  Company Number: 2010004104

PATIENT
  Age: 62 Year
  Sex: Female

DRUGS (18)
  1. ERLOTINIB (ERLOTINIB) (TABLET) (ERLOTINIB) [Suspect]
     Indication: NON-SMALL CELL LUNG CANCER
     Dosage: (150 MG, 2X PER 21 DAYS), ORAL
     Route: 048
     Dates: start: 20100723, end: 20100822
  2. ERIBULIN MESYLATE [Suspect]
     Indication: NON-SMALL CELL LUNG CANCER
     Dosage: (7.54 MG, 2X PER 21 DAYS), INTRAVENOUS
     Route: 042
     Dates: start: 20100722
  3. CELECOXIB [Concomitant]
  4. METFORMIN HCL [Concomitant]
  5. OMEPRAZOLE [Concomitant]
  6. SIMVASTATIN [Concomitant]
  7. MEGESTROL ACETATE [Concomitant]
  8. DIMETHICONE [Concomitant]
  9. BENZYDAMINE (BENZYDAMINE) [Concomitant]
  10. CHOLINE SALICYLATE (CHOLINE SALICYLATE) [Concomitant]
  11. MORPHINE SULFATE INJ [Concomitant]
  12. AMLODIPINE [Concomitant]
  13. GLIPIZIDE (GLIPIZIDE) [Concomitant]
  14. ACARBOSE [Concomitant]
  15. CHLORHEXIDINE (CHLORHEXIDINE) [Concomitant]
  16. LOMOTIL [Concomitant]
  17. HYOSCINE HBR HYT [Concomitant]
  18. ACETAMINOPHEN [Concomitant]

REACTIONS (4)
  - DIARRHOEA [None]
  - FEBRILE NEUTROPENIA [None]
  - PYREXIA [None]
  - VIBRIO TEST POSITIVE [None]
